FAERS Safety Report 6753880-9 (Version None)
Quarter: 2010Q2

REPORT INFORMATION
  Report Type: 
  Country: None (occurrence: None)
  Receive Date: 20100603
  Receipt Date: 20100601
  Transmission Date: 20101027
  Serious: Yes (Other)
  Sender: FDA-Public Use
  Company Number: A0862187A

PATIENT
  Age: 62 Year
  Sex: Male

DRUGS (1)
  1. NICODERM CQ [Suspect]
     Indication: SMOKING CESSATION THERAPY
     Dosage: 21MG UNKNOWN
     Route: 062
     Dates: start: 20100501, end: 20100501

REACTIONS (10)
  - ABASIA [None]
  - APHASIA [None]
  - BLINDNESS [None]
  - DIZZINESS [None]
  - FEELING ABNORMAL [None]
  - HYPOAESTHESIA [None]
  - MALAISE [None]
  - PERFORMANCE STATUS DECREASED [None]
  - PRODUCT QUALITY ISSUE [None]
  - SOMNOLENCE [None]
